FAERS Safety Report 23268780 (Version 1)
Quarter: 2023Q4

REPORT INFORMATION
  Report Type: Spontaneous
  Country: RO (occurrence: RO)
  Receive Date: 20231206
  Receipt Date: 20231206
  Transmission Date: 20240109
  Serious: Yes (Death, Hospitalization, Other)
  Sender: FDA-Public Use
  Company Number: RO-ELI_LILLY_AND_COMPANY-RO202312001332

PATIENT
  Age: 48 Year
  Sex: Female

DRUGS (3)
  1. ABEMACICLIB [Suspect]
     Active Substance: ABEMACICLIB
     Indication: Breast cancer metastatic
     Dosage: UNK, UNKNOWN
     Route: 065
     Dates: start: 20220513
  2. LETROZOLE [Concomitant]
     Active Substance: LETROZOLE
     Indication: Breast cancer metastatic
     Dosage: UNK UNK, UNKNOWN
     Route: 065
     Dates: start: 20220513
  3. GOSERELIN [Concomitant]
     Active Substance: GOSERELIN
     Indication: Breast cancer metastatic
     Dosage: UNK, UNKNOWN
     Route: 065
     Dates: start: 20220513

REACTIONS (12)
  - Death [Fatal]
  - Dyspnoea at rest [Unknown]
  - Wheezing [Unknown]
  - Productive cough [Unknown]
  - Hyperuricaemia [Unknown]
  - Hyperglycaemia [Unknown]
  - Cerebrovascular disorder [Unknown]
  - Multisystem inflammatory syndrome [Unknown]
  - Lymphangiosis carcinomatosa [Unknown]
  - Skin toxicity [Unknown]
  - Radiation skin injury [Unknown]
  - Diarrhoea [Recovering/Resolving]
